FAERS Safety Report 5671883-2 (Version None)
Quarter: 2008Q1

REPORT INFORMATION
  Report Type: 
  Country: None (occurrence: None)
  Receive Date: 20080314
  Receipt Date: 20080305
  Transmission Date: 20080703
  Serious: Yes (Other)
  Sender: FDA-Public Use
  Company Number: CHNY2008GB00832

PATIENT
  Age: 49 Year
  Sex: Male

DRUGS (1)
  1. NICOTINE [Suspect]
     Dosage: 20 DF, QD, CHEWED
     Route: 002

REACTIONS (4)
  - DISTURBANCE IN ATTENTION [None]
  - DIZZINESS [None]
  - DRUG DEPENDENCE [None]
  - MALAISE [None]
